FAERS Safety Report 8891365 (Version 1)
Quarter: 2012Q4

REPORT INFORMATION
  Report Type: Spontaneous
  Country: US (occurrence: None)
  Receive Date: 20121105
  Receipt Date: 20121105
  Transmission Date: 20130627
  Serious: Yes (Life-Threatening)
  Sender: FDA-Public Use
  Company Number: None

PATIENT
  Age: 67 Year
  Sex: Female
  Weight: 133 kg

DRUGS (2)
  1. CEFTRIAXONE [Suspect]
     Indication: PNEUMONIA
     Dosage: 1 gram once IV (042)
10/11/2012 at 3:23 pm (1st dose)
mixed with #2
     Route: 042
     Dates: start: 20121011
  2. 0.9% SODIUM CHLORIDE [Suspect]

REACTIONS (12)
  - Infusion site pain [None]
  - Dyspnoea [None]
  - Malaise [None]
  - Convulsion [None]
  - Urinary incontinence [None]
  - Apnoea [None]
  - Sinus bradycardia [None]
  - Pulse pressure decreased [None]
  - Swollen tongue [None]
  - Electrocardiogram ST segment elevation [None]
  - Coronary artery disease [None]
  - Infusion related reaction [None]
